FAERS Safety Report 7816382-4 (Version None)
Quarter: 2011Q4

REPORT INFORMATION
  Report Type: 
  Country: None (occurrence: None)
  Receive Date: 20111017
  Receipt Date: 20111007
  Transmission Date: 20120403
  Serious: Yes (Hospitalization, Other)
  Sender: FDA-Public Use
  Company Number: US-BIOGENIDEC-2011BI038753

PATIENT
  Age: 77 Year
  Sex: Female

DRUGS (3)
  1. AVONEX [Suspect]
     Indication: MULTIPLE SCLEROSIS
     Route: 030
     Dates: start: 20040624
  2. TYSABRI [Concomitant]
     Indication: MULTIPLE SCLEROSIS
     Route: 042
     Dates: start: 20050208, end: 20050208
  3. AVONEX [Suspect]
     Route: 030
     Dates: start: 19970601, end: 20031231

REACTIONS (5)
  - RABIES IMMUNISATION [None]
  - DEHYDRATION [None]
  - ANIMAL BITE [None]
  - ASTHENIA [None]
  - CYSTITIS [None]
